FAERS Safety Report 8474885-6 (Version None)
Quarter: 2012Q2

REPORT INFORMATION
  Report Type: 
  Country: None (occurrence: None)
  Receive Date: 20120628
  Receipt Date: 20120619
  Transmission Date: 20120825
  Serious: Yes (Hospitalization)
  Sender: FDA-Public Use
  Company Number: BR-ASTRAZENECA-2012SE41407

PATIENT
  Age: 6 Month
  Sex: Male
  Weight: 7 kg

DRUGS (3)
  1. OMEPRAZOLE MAGNESIUM [Suspect]
     Indication: GASTROOESOPHAGEAL REFLUX DISEASE
     Route: 048
     Dates: start: 20120501, end: 20120603
  2. GLUCOCORTICOSTEROID [Suspect]
     Indication: BRONCHIOLITIS
     Route: 055
  3. OMEPRAZOLE MAGNESIUM [Suspect]
     Route: 048
     Dates: start: 20120604

REACTIONS (2)
  - OFF LABEL USE [None]
  - BRONCHIOLITIS [None]
